FAERS Safety Report 21989535 (Version 2)
Quarter: 2023Q2

REPORT INFORMATION
  Report Type: Report from Study
  Country: US (occurrence: US)
  Receive Date: 20230214
  Receipt Date: 20230601
  Transmission Date: 20230722
  Serious: Yes (Other)
  Sender: FDA-Public Use
  Company Number: US-002147023-NVSC2022US303454

PATIENT
  Sex: Male

DRUGS (3)
  1. ENTRESTO [Suspect]
     Active Substance: SACUBITRIL\VALSARTAN
     Indication: Product used for unknown indication
     Dosage: 1 DOSAGE FORM, QD
     Route: 048
     Dates: start: 202210
  2. ENTRESTO [Suspect]
     Active Substance: SACUBITRIL\VALSARTAN
     Dosage: 1 DOSAGE FORM, BID
     Route: 048
  3. ENTRESTO [Suspect]
     Active Substance: SACUBITRIL\VALSARTAN
     Dosage: 2 DOSAGE FORM, BID
     Route: 065

REACTIONS (13)
  - Syncope [Recovering/Resolving]
  - Myocardial infarction [Unknown]
  - Asthenia [Unknown]
  - Fatigue [Unknown]
  - Decreased activity [Unknown]
  - Pallor [Unknown]
  - Heart rate decreased [Unknown]
  - Hypersomnia [Unknown]
  - Fall [Unknown]
  - Hypotension [Recovering/Resolving]
  - Dizziness [Unknown]
  - Cough [Unknown]
  - Inappropriate schedule of product administration [Unknown]
